FAERS Safety Report 14145638 (Version 1)
Quarter: 2017Q4

REPORT INFORMATION
  Report Type: Spontaneous
  Country: US (occurrence: US)
  Receive Date: 20171030
  Receipt Date: 20171030
  Transmission Date: 20180321
  Serious: Yes (Hospitalization)
  Sender: FDA-Public Use
  Company Number: None

PATIENT
  Age: 64 Year
  Sex: Female
  Weight: 61.5 kg

DRUGS (2)
  1. KEYTRUDA [Suspect]
     Active Substance: PEMBROLIZUMAB
     Indication: CERVIX CARCINOMA STAGE IV
     Dosage: ?          OTHER FREQUENCY:EVERY 3 WEEKS;?
     Route: 040
     Dates: start: 20170629, end: 20170810
  2. KEYTRUDA [Suspect]
     Active Substance: PEMBROLIZUMAB
     Indication: METASTASES TO LUNG
     Dosage: ?          OTHER FREQUENCY:EVERY 3 WEEKS;?
     Route: 040
     Dates: start: 20170629, end: 20170810

REACTIONS (3)
  - Enteritis [None]
  - Colitis [None]
  - Faeces discoloured [None]

NARRATIVE: CASE EVENT DATE: 20170905
